FAERS Safety Report 9248150 (Version 2)
Quarter: 2013Q4

REPORT INFORMATION
  Report Type: Other
  Country: GB (occurrence: GB)
  Receive Date: 20130423
  Receipt Date: 20131014
  Transmission Date: 20140711
  Serious: Yes (Disabling)
  Sender: FDA-Public Use
  Company Number: GB-FOUGERA-2013FO000102

PATIENT
  Age: 64 Year
  Sex: Male
  Weight: 85.81 kg

DRUGS (5)
  1. DICLOFENAC SODIUM [Suspect]
     Indication: PRODUCT USED FOR UNKNOWN INDICATION
     Dates: start: 20121220
  2. FINASTERIDE [Suspect]
     Indication: BACK PAIN
     Dates: start: 20130130
  3. OMEPRAZOLE [Concomitant]
     Indication: PRODUCT USED FOR UNKNOWN INDICATION
     Dates: start: 20121220
  4. PROCHLORPERAZINE [Concomitant]
     Indication: PRODUCT USED FOR UNKNOWN INDICATION
     Dates: start: 20130109, end: 20130115
  5. DUTASTERIDE [Concomitant]
     Indication: BACK PAIN

REACTIONS (1)
  - No adverse event [Recovered/Resolved]
